FAERS Safety Report 4769896-8 (Version None)
Quarter: 2005Q3

REPORT INFORMATION
  Report Type: 
  Country: None (occurrence: None)
  Receive Date: 20050912
  Receipt Date: 20050404
  Transmission Date: 20060218
  Serious: Yes (Hospitalization)
  Sender: FDA-Public Use
  Company Number: US012951

PATIENT
  Age: 14 Year
  Sex: Female
  Weight: 100 kg

DRUGS (3)
  1. GABITRIL [Suspect]
     Dates: start: 20040402, end: 20040402
  2. ALBUTEROL [Concomitant]
  3. FLOVENT [Concomitant]

REACTIONS (4)
  - BLOOD PRESSURE INCREASED [None]
  - INTENTIONAL MISUSE [None]
  - STATUS EPILEPTICUS [None]
  - SUICIDE ATTEMPT [None]
